FAERS Safety Report 16958332 (Version 1)
Quarter: 2019Q4

REPORT INFORMATION
  Report Type: Spontaneous
  Country: US (occurrence: US)
  Receive Date: 20191024
  Receipt Date: 20191024
  Transmission Date: 20200122
  Serious: No
  Sender: FDA-Public Use
  Company Number: US-BAYER-2019-188113

PATIENT
  Age: 52 Year
  Weight: 92.06 kg

DRUGS (3)
  1. XELODA [Concomitant]
     Active Substance: CAPECITABINE
  2. NEULASTA [Concomitant]
     Active Substance: PEGFILGRASTIM
  3. STIVARGA [Suspect]
     Active Substance: REGORAFENIB
     Dosage: UNK

REACTIONS (6)
  - Oral pain [Recovering/Resolving]
  - Paraesthesia [Recovering/Resolving]
  - Dysphonia [Recovering/Resolving]
  - Diarrhoea [Recovered/Resolved]
  - Ear pain [Recovering/Resolving]
  - Eye disorder [Recovered/Resolved]

NARRATIVE: CASE EVENT DATE: 201910
